FAERS Safety Report 7141945-1 (Version None)
Quarter: 2010Q4

REPORT INFORMATION
  Report Type: 
  Country: None (occurrence: None)
  Receive Date: 20101207
  Receipt Date: 20101130
  Transmission Date: 20110411
  Serious: Yes (Death)
  Sender: FDA-Public Use
  Company Number: US-NAPPMUNDI-USA-2010-0051801

PATIENT
  Sex: Male
  Weight: 52.154 kg

DRUGS (2)
  1. OXYCONTIN [Suspect]
     Indication: PAIN
     Dosage: 10 MG, Q12H
     Route: 048
     Dates: start: 20101021, end: 20101028
  2. CARBOPLATIN/TAXOL [Concomitant]
     Indication: CHEMOTHERAPY
     Dosage: UNK NG/ML, UNK

REACTIONS (1)
  - MALIGNANT NEOPLASM PROGRESSION [None]
